FAERS Safety Report 7959420-0 (Version None)
Quarter: 2011Q4

REPORT INFORMATION
  Report Type: 
  Country: None (occurrence: None)
  Receive Date: 20111206
  Receipt Date: 20111129
  Transmission Date: 20120403
  Serious: Yes (Death)
  Sender: FDA-Public Use
  Company Number: FR-UCBSA-046679

PATIENT
  Age: 65 Year
  Sex: Male

DRUGS (6)
  1. KEPPRA [Suspect]
     Indication: GLIOBLASTOMA
     Dosage: 2000MG DAILY
     Route: 048
     Dates: start: 20110813, end: 20110928
  2. TEMODAL [Suspect]
     Indication: GLIOBLASTOMA
     Dosage: 170MG DAILY
     Route: 048
     Dates: start: 20110812, end: 20110927
  3. LOVENOX [Concomitant]
     Route: 058
     Dates: start: 20110819, end: 20110922
  4. SOLU-MEDROL [Concomitant]
     Route: 042
     Dates: start: 20110813, end: 20111012
  5. CHEMOTHERAPY [Concomitant]
  6. KEPPRA [Suspect]
     Dosage: 1000MG DAILY
     Route: 048
     Dates: start: 20110730, end: 20110812

REACTIONS (1)
  - THROMBOCYTOPENIA [None]
